FAERS Safety Report 14688131 (Version 2)
Quarter: 2018Q3

REPORT INFORMATION
  Report Type: Spontaneous
  Country: US (occurrence: US)
  Receive Date: 20180328
  Receipt Date: 20180824
  Transmission Date: 20181010
  Serious: No
  Sender: FDA-Public Use
  Company Number: US-PFIZER INC-2018126483

PATIENT
  Age: 46 Year
  Sex: Female

DRUGS (4)
  1. PREMPRO [Suspect]
     Active Substance: ESTROGENS, CONJUGATED\MEDROXYPROGESTERONE ACETATE
     Indication: MENOPAUSE
     Dosage: UNK [45/1.5 ]
     Dates: start: 20161001, end: 20171012
  2. NORTRIPTYLINE [Concomitant]
     Active Substance: NORTRIPTYLINE
     Dosage: 30 MG, UNK
     Dates: start: 20141211, end: 20170918
  3. PROVIGIL [Interacting]
     Active Substance: MODAFINIL
     Indication: SOMNOLENCE
     Dosage: 100 MG, DAILY
     Dates: start: 2012, end: 20170818
  4. TRAMADOL. [Concomitant]
     Active Substance: TRAMADOL
     Dosage: 200 MG, UNK
     Dates: start: 2012

REACTIONS (3)
  - Migraine [Recovered/Resolved]
  - Headache [Recovered/Resolved]
  - Drug interaction [Recovered/Resolved]

NARRATIVE: CASE EVENT DATE: 201705
